FAERS Safety Report 18672176 (Version 1)
Quarter: 2020Q4

REPORT INFORMATION
  Report Type: Spontaneous
  Country: US (occurrence: US)
  Receive Date: 20201228
  Receipt Date: 20201228
  Transmission Date: 20210114
  Serious: Yes (Hospitalization)
  Sender: FDA-Public Use
  Company Number: US-ALXN-A202019059

PATIENT
  Age: 8 Year
  Sex: Female

DRUGS (1)
  1. STRENSIQ [Suspect]
     Active Substance: ASFOTASE ALFA
     Indication: HYPOPHOSPHATASIA
     Route: 058
     Dates: start: 201603

REACTIONS (2)
  - Injection site pain [Recovering/Resolving]
  - Osteotomy [Recovering/Resolving]

NARRATIVE: CASE EVENT DATE: 201603
